FAERS Safety Report 5823498-0 (Version None)
Quarter: 2008Q3

REPORT INFORMATION
  Report Type: 
  Country: None (occurrence: None)
  Receive Date: 20080725
  Receipt Date: 20080714
  Transmission Date: 20090109
  Serious: Yes (Death, Other)
  Sender: FDA-Public Use
  Company Number: US-PFIZER INC-2008060245

PATIENT
  Sex: Male

DRUGS (2)
  1. LYRICA [Suspect]
     Indication: NEUROPATHY PERIPHERAL
  2. ACE INHIBITOR NOS [Concomitant]

REACTIONS (9)
  - CONJUNCTIVITIS [None]
  - MUSCLE DISORDER [None]
  - OEDEMA [None]
  - OVERDOSE [None]
  - PYREXIA [None]
  - RENAL FAILURE [None]
  - RESPIRATORY FAILURE [None]
  - SUICIDAL IDEATION [None]
  - WEIGHT INCREASED [None]
